FAERS Safety Report 7826161-X (Version None)
Quarter: 2011Q4

REPORT INFORMATION
  Report Type: 
  Country: None (occurrence: None)
  Receive Date: 20111020
  Receipt Date: 20111011
  Transmission Date: 20120403
  Serious: Yes (Other)
  Sender: FDA-Public Use
  Company Number: DE-AMGEN-DEUSP2011052429

PATIENT
  Age: 84 Year
  Sex: Male

DRUGS (5)
  1. CALCIUM CARBONATE [Concomitant]
  2. VITAMIN D [Concomitant]
  3. XGEVA [Suspect]
     Indication: METASTASES TO BONE
     Dosage: UNK
  4. DOCETAXEL [Concomitant]
     Dosage: 780 MG, Q3WK
  5. CABAZITAXEL [Concomitant]

REACTIONS (5)
  - POLYNEUROPATHY [None]
  - DIVERTICULUM INTESTINAL [None]
  - NEUTROPENIA [None]
  - METASTASES TO BONE [None]
  - BONE PAIN [None]
